FAERS Safety Report 4929755-4 (Version None)
Quarter: 2006Q1

REPORT INFORMATION
  Report Type: 
  Country: None (occurrence: None)
  Receive Date: 20060224
  Receipt Date: 20060214
  Transmission Date: 20060701
  Serious: Yes (Other)
  Sender: FDA-Public Use
  Company Number: 2006BH003150

PATIENT
  Sex: Female
  Weight: 79.38 kg

DRUGS (8)
  1. DIGOXIN [Suspect]
     Indication: TACHYCARDIA
     Dosage: 0.5 MG; ONCE; IV
     Route: 042
     Dates: start: 20060210, end: 20060210
  2. LEVOTHYROXIN [Concomitant]
  3. LOPRESSOR [Concomitant]
  4. WARFARIN SODIUM [Concomitant]
  5. PROTONIX [Concomitant]
  6. NACL [Concomitant]
  7. NACL [Concomitant]
  8. NACL [Concomitant]

REACTIONS (3)
  - ARTHRALGIA [None]
  - BRADYCARDIA [None]
  - DRUG INEFFECTIVE [None]
